FAERS Safety Report 26122995 (Version 1)
Quarter: 2025Q4

REPORT INFORMATION
  Report Type: Spontaneous
  Country: CN (occurrence: CN)
  Receive Date: 20251204
  Receipt Date: 20251204
  Transmission Date: 20260118
  Serious: Yes (Life-Threatening)
  Sender: PFIZER
  Company Number: CN-PFIZER INC-PV202500140619

PATIENT
  Age: 58 Year
  Sex: Male

DRUGS (1)
  1. LINEZOLID [Suspect]
     Active Substance: LINEZOLID
     Indication: Wound infection
     Dosage: 600 MG, 2X/DAY
     Route: 048
     Dates: start: 20251117, end: 20251121

REACTIONS (4)
  - Platelet count decreased [Unknown]
  - Neutrophil count decreased [Unknown]
  - Epistaxis [Unknown]
  - Injection site haemorrhage [Unknown]

NARRATIVE: CASE EVENT DATE: 20251121
